FAERS Safety Report 4889602-6 (Version None)
Quarter: 2006Q1

REPORT INFORMATION
  Report Type: 
  Country: None (occurrence: None)
  Receive Date: 20060120
  Receipt Date: 20060120
  Transmission Date: 20060701
  Serious: Yes (Hospitalization, Other)
  Sender: FDA-Public Use
  Company Number: None

PATIENT
  Sex: Female
  Weight: 98.18 kg

DRUGS (3)
  1. CETUXIMAB [Suspect]
     Indication: ADENOCARCINOMA OF THE CERVIX
     Dosage: SEE IMAGE
     Dates: start: 20060111, end: 20060111
  2. DIPHENHYDRAMINE [Concomitant]
  3. PALONOSETRON [Concomitant]

REACTIONS (4)
  - ANAPHYLACTIC REACTION [None]
  - HYPERTENSION [None]
  - INFUSION RELATED REACTION [None]
  - PULSE ABSENT [None]
